FAERS Safety Report 8285064-X (Version None)
Quarter: 2012Q2

REPORT INFORMATION
  Report Type: 
  Country: None (occurrence: None)
  Receive Date: 20120413
  Receipt Date: 20111006
  Transmission Date: 20120825
  Serious: No
  Sender: FDA-Public Use
  Company Number: US-ASTRAZENECA-2011SE51164

PATIENT
  Age: 30 Year
  Sex: Female
  Weight: 127 kg

DRUGS (9)
  1. NEXIUM [Suspect]
     Route: 048
  2. SEROQUEL [Suspect]
     Route: 048
     Dates: start: 20110801
  3. ABILIFY [Suspect]
     Route: 065
     Dates: end: 20110701
  4. SOMA [Concomitant]
     Indication: NERVOUS SYSTEM DISORDER
     Dosage: 350 MILLGRAMS TOTAL DAILY DOSE FREQUENCY FOUR TIMES ADAY
     Route: 065
  5. ATENOLOL [Concomitant]
     Indication: HEART RATE DECREASED
     Route: 065
     Dates: start: 20110701
  6. SEROQUEL [Suspect]
     Indication: BIPOLAR DISORDER
     Route: 048
  7. CYMBALTA [Concomitant]
     Indication: DEPRESSION
     Route: 065
     Dates: start: 20110601
  8. AMBIEN [Concomitant]
     Indication: SLEEP DISORDER
     Route: 065
     Dates: start: 20090101
  9. ALPRAZOLAM [Concomitant]
     Indication: PANIC ATTACK
     Route: 065
     Dates: start: 20090101

REACTIONS (5)
  - DRUG DOSE OMISSION [None]
  - HALLUCINATION [None]
  - CONDITION AGGRAVATED [None]
  - INSOMNIA [None]
  - DRUG INEFFECTIVE [None]
